FAERS Safety Report 9927704 (Version 3)
Quarter: 2014Q1

REPORT INFORMATION
  Report Type: Spontaneous
  Country: JP (occurrence: JP)
  Receive Date: 20140227
  Receipt Date: 20140324
  Transmission Date: 20141002
  Serious: No
  Sender: FDA-Public Use
  Company Number: JP-ROCHE-1350064

PATIENT
  Age: 64 Year
  Sex: Female
  Weight: 45 kg

DRUGS (4)
  1. ACTEMRA [Suspect]
     Indication: RHEUMATOID ARTHRITIS
     Route: 058
     Dates: start: 20131029, end: 20140121
  2. PREDONINE [Concomitant]
     Indication: INTERSTITIAL LUNG DISEASE
     Route: 065
     Dates: start: 20120428
  3. PREDONINE [Concomitant]
     Indication: INTERSTITIAL LUNG DISEASE
     Dosage: UNCERTAIN DOSAGE AND GRADUAL DECREASE
     Route: 065
  4. PREDONINE [Concomitant]
     Indication: RHEUMATOID ARTHRITIS
     Route: 065
     Dates: start: 20130304

REACTIONS (1)
  - Aspergillus infection [Not Recovered/Not Resolved]
